FAERS Safety Report 18776912 (Version 10)
Quarter: 2021Q1

REPORT INFORMATION
  Report Type: Spontaneous
  Country: GB (occurrence: GB)
  Receive Date: 20210122
  Receipt Date: 20210331
  Transmission Date: 20210419
  Serious: Yes (Hospitalization, Other)
  Sender: FDA-Public Use
  Company Number: GB-TEVA-2021-GB-1869731

PATIENT
  Age: 59 Year
  Sex: Male

DRUGS (32)
  1. RISPERIDONE. [Suspect]
     Active Substance: RISPERIDONE
     Dosage: 1 GRAM DAILY;
     Route: 065
  2. CLOZARIL [Suspect]
     Active Substance: CLOZAPINE
     Dosage: 300 MILLIGRAM DAILY; 300 MILLIGRAM, PM
     Route: 065
  3. CLOZARIL [Suspect]
     Active Substance: CLOZAPINE
     Dosage: UNK UNK, AM
     Route: 065
     Dates: start: 2011
  4. ARIPIPRAZOLE. [Suspect]
     Active Substance: ARIPIPRAZOLE
     Indication: SCHIZOPHRENIA
     Dosage: 5 MG
     Route: 065
  5. ARIPIPRAZOLE. [Suspect]
     Active Substance: ARIPIPRAZOLE
     Indication: PRODUCT USED FOR UNKNOWN INDICATION
  6. LORAZEPAM. [Suspect]
     Active Substance: LORAZEPAM
     Indication: PRODUCT USED FOR UNKNOWN INDICATION
  7. CHLORPROMAZINE. [Suspect]
     Active Substance: CHLORPROMAZINE
     Indication: PRODUCT USED FOR UNKNOWN INDICATION
  8. CLOPIXOL [Suspect]
     Active Substance: ZUCLOPENTHIXOL
     Indication: PRODUCT USED FOR UNKNOWN INDICATION
     Dosage: 400 MILLIGRAM, WEEKLY
     Route: 065
     Dates: start: 20040217, end: 20040601
  9. CLOZARIL [Suspect]
     Active Substance: CLOZAPINE
     Dosage: 50 MILLIGRAM MIDDAY
     Route: 065
  10. HALOPERIDOL. [Suspect]
     Active Substance: HALOPERIDOL
     Indication: SCHIZOPHRENIA
     Dosage: 10 MILLIGRAM DAILY; 5 MILLIGRAM, BID
     Route: 065
  11. OLANZAPINE. [Suspect]
     Active Substance: OLANZAPINE
     Indication: SCHIZOPHRENIA
     Dosage: 15 MG
     Route: 065
     Dates: start: 20040217
  12. RISPERIDONE. [Suspect]
     Active Substance: RISPERIDONE
     Indication: PRODUCT USED FOR UNKNOWN INDICATION
     Dosage: 6 MILLIGRAM DAILY; 3 MG BID
     Route: 065
  13. CLOPIXOL [Suspect]
     Active Substance: ZUCLOPENTHIXOL
     Dosage: UNK
     Route: 065
  14. OLANZAPINE. [Suspect]
     Active Substance: OLANZAPINE
     Dosage: 2.5 UNK
     Route: 065
     Dates: start: 20080823
  15. CLOZARIL [Suspect]
     Active Substance: CLOZAPINE
     Dosage: 275 MILLIGRAM DAILY; 275 MILLIGRAM, PM
     Route: 065
  16. CLOZARIL [Suspect]
     Active Substance: CLOZAPINE
     Dosage: UNK
     Route: 065
     Dates: start: 20100823
  17. OLANZAPINE. [Suspect]
     Active Substance: OLANZAPINE
     Indication: PRODUCT USED FOR UNKNOWN INDICATION
     Route: 065
  18. RISPERIDONE. [Suspect]
     Active Substance: RISPERIDONE
     Dosage: 1 MILLIGRAM DAILY;
     Route: 065
  19. CHLORPROMAZINE. [Suspect]
     Active Substance: CHLORPROMAZINE
     Indication: SCHIZOPHRENIA
     Dosage: 75 MG
     Route: 065
  20. CLOPIXOL [Suspect]
     Active Substance: ZUCLOPENTHIXOL
     Dosage: 300 MILLIGRAM DAILY;
     Route: 030
     Dates: start: 20091009
  21. CLOZARIL [Suspect]
     Active Substance: CLOZAPINE
     Dosage: 400 MILLIGRAM DAILY; 200MG, BID
     Route: 048
     Dates: start: 20191209, end: 20191223
  22. CLOZARIL [Suspect]
     Active Substance: CLOZAPINE
     Dosage: UNK,
     Route: 065
     Dates: start: 20201207
  23. LORAZEPAM. [Suspect]
     Active Substance: LORAZEPAM
     Indication: SCHIZOPHRENIA
     Dosage: 1 MG
     Route: 048
  24. OLANZAPINE. [Suspect]
     Active Substance: OLANZAPINE
     Dosage: 15 UNK
     Route: 065
     Dates: start: 20060704
  25. CLOZARIL [Suspect]
     Active Substance: CLOZAPINE
     Indication: SCHIZOPHRENIA
     Dosage: 400 MILLIGRAM DAILY;
     Route: 065
  26. CLOZARIL [Suspect]
     Active Substance: CLOZAPINE
     Dosage: 100 MILLIGRAM DAILY; 100 MILLIGRAM, AM
     Route: 065
  27. CLOZARIL [Suspect]
     Active Substance: CLOZAPINE
     Dosage: UNK
     Route: 048
     Dates: start: 20200521
  28. HALOPERIDOL. [Suspect]
     Active Substance: HALOPERIDOL
     Indication: PRODUCT USED FOR UNKNOWN INDICATION
     Dosage: 20 MILLIGRAM DAILY; 10 MILLIGRAM, BID
     Route: 065
  29. RISPERIDONE. [Suspect]
     Active Substance: RISPERIDONE
     Indication: SCHIZOPHRENIA
     Dosage: 4 MILLIGRAM DAILY; 2 MG BID
     Route: 065
  30. CLOPIXOL [Suspect]
     Active Substance: ZUCLOPENTHIXOL
     Dosage: 400 MILLIGRAM, BIWEEKLY
     Route: 065
     Dates: start: 20030204, end: 20040217
  31. CLOPIXOL [Suspect]
     Active Substance: ZUCLOPENTHIXOL
     Dosage: 400 MILLIGRAM, BIWEEKLY
     Route: 065
     Dates: start: 20040601, end: 20041018
  32. LITHIUM. [Suspect]
     Active Substance: LITHIUM
     Indication: PRODUCT USED FOR UNKNOWN INDICATION
     Dosage: 1 GRAM
     Route: 065

REACTIONS (14)
  - Schizophrenia [Not Recovered/Not Resolved]
  - Delusion of grandeur [Unknown]
  - Psychotic disorder [Recovered/Resolved]
  - Extrapyramidal disorder [Unknown]
  - Leukopenia [Not Recovered/Not Resolved]
  - Affective disorder [Recovered/Resolved]
  - Hospitalisation [Unknown]
  - Lymphocyte count decreased [Unknown]
  - Fatigue [Unknown]
  - Neutropenia [Not Recovered/Not Resolved]
  - Hallucination, auditory [Unknown]
  - Neutrophil count increased [Unknown]
  - Platelet count decreased [Not Recovered/Not Resolved]
  - Off label use [Unknown]

NARRATIVE: CASE EVENT DATE: 2019
